FAERS Safety Report 6196824-3 (Version None)
Quarter: 2009Q2

REPORT INFORMATION
  Report Type: 
  Country: None (occurrence: None)
  Receive Date: 20090520
  Receipt Date: 20090511
  Transmission Date: 20091009
  Serious: Yes (Disabling)
  Sender: FDA-Public Use
  Company Number: TR-WATSON-2009-03351

PATIENT
  Age: 44 Year
  Sex: Female

DRUGS (4)
  1. PREDNISOLONE (WATSON LABORATORIES) [Suspect]
     Indication: MYASTHENIA GRAVIS
     Dosage: 75 MG, QOD
     Dates: start: 20020701
  2. AZATHIOPRINE [Suspect]
     Indication: MYASTHENIA GRAVIS
     Dosage: 150 MG, DAILY
     Dates: start: 20020701
  3. PYRIDOSTIGMINE BROMIDE [Concomitant]
     Indication: MYASTHENIA GRAVIS
     Dosage: 360 MG, DAILY
     Dates: start: 20040701
  4. IMMUNE GLOBULIN (HUMAN) [Concomitant]
     Indication: MYASTHENIA GRAVIS
     Dosage: 2 G/KG
     Route: 042

REACTIONS (1)
  - PROGRESSIVE MULTIFOCAL LEUKOENCEPHALOPATHY [None]
